FAERS Safety Report 18408968 (Version 2)
Quarter: 2020Q4

REPORT INFORMATION
  Report Type: Report from Study
  Country: None (occurrence: ES)
  Receive Date: 20201021
  Receipt Date: 20201104
  Transmission Date: 20210114
  Serious: Yes (Death)
  Sender: FDA-Public Use
  Company Number: ES-BIOVITRUM-2020ES5535

PATIENT
  Age: 61 Year
  Sex: Male

DRUGS (6)
  1. TRIMETHOPRIM SULFAMETHOXAZOLE [Concomitant]
     Active Substance: SULFAMETHOXAZOLE\TRIMETHOPRIM
     Dosage: 800/160 EVERY 8 HOURS
     Route: 042
  2. DEXAMETHASONE. [Concomitant]
     Active Substance: DEXAMETHASONE
     Route: 042
  3. ANAKINRA [Suspect]
     Active Substance: ANAKINRA
     Indication: COVID-19
     Route: 042
     Dates: start: 20200918, end: 20200923
  4. MEROPENEM. [Concomitant]
     Active Substance: MEROPENEM
     Route: 042
  5. LINEZOLID. [Concomitant]
     Active Substance: LINEZOLID
     Route: 042
  6. AMPHOTERICIN-B [Concomitant]
     Active Substance: AMPHOTERICIN B
     Route: 042

REACTIONS (2)
  - COVID-19 pneumonia [Fatal]
  - Acute respiratory distress syndrome [Fatal]

NARRATIVE: CASE EVENT DATE: 20200928
